FAERS Safety Report 18040775 (Version 2)
Quarter: 2021Q1

REPORT INFORMATION
  Report Type: Spontaneous
  Country: US (occurrence: US)
  Receive Date: 20200717
  Receipt Date: 20210105
  Transmission Date: 20210419
  Serious: Yes (Hospitalization)
  Sender: FDA-Public Use
  Company Number: US-INCYTE CORPORATION-2020IN006824

PATIENT

DRUGS (2)
  1. JAKAFI [Suspect]
     Active Substance: RUXOLITINIB
     Dosage: 5 MILLIGRAM, BID
     Route: 048
     Dates: start: 20200227
  2. JAKAFI [Suspect]
     Active Substance: RUXOLITINIB
     Dosage: 10 MILLIGRAM, BID
     Route: 048
     Dates: start: 202002

REACTIONS (3)
  - Product distribution issue [Unknown]
  - Off label use [Unknown]
  - BK virus infection [Unknown]

NARRATIVE: CASE EVENT DATE: 20200227
